FAERS Safety Report 9694537 (Version 2)
Quarter: 2013Q4

REPORT INFORMATION
  Report Type: Spontaneous
  Country: US (occurrence: US)
  Receive Date: 20131118
  Receipt Date: 20131118
  Transmission Date: 20140711
  Serious: Yes (Other)
  Sender: FDA-Public Use
  Company Number: US-SANOFI-AVENTIS-2013SA083457

PATIENT
  Age: 68 Year
  Sex: Female
  Weight: 80.5 kg

DRUGS (21)
  1. ZALTRAP [Suspect]
     Indication: COLORECTAL CANCER METASTATIC
     Route: 042
     Dates: start: 2010
  2. ZALTRAP [Suspect]
     Indication: COLORECTAL CANCER METASTATIC
     Route: 042
     Dates: start: 20130612, end: 20130628
  3. OXALIPLATIN [Suspect]
     Indication: COLORECTAL CANCER METASTATIC
     Route: 065
     Dates: start: 2010
  4. AVASTIN [Suspect]
     Indication: COLORECTAL CANCER METASTATIC
     Route: 042
     Dates: start: 2010
  5. AVASTIN [Suspect]
     Indication: COLORECTAL CANCER METASTATIC
     Route: 042
     Dates: start: 200909, end: 20130524
  6. FU [Suspect]
     Indication: COLORECTAL CANCER METASTATIC
     Route: 065
     Dates: start: 20130612, end: 20130628
  7. FU [Suspect]
     Indication: COLORECTAL CANCER METASTATIC
     Route: 065
     Dates: start: 2010
  8. FOLINIC ACID [Suspect]
     Indication: COLORECTAL CANCER METASTATIC
     Route: 065
     Dates: start: 20130612, end: 20130628
  9. FOLINIC ACID [Suspect]
     Indication: COLORECTAL CANCER METASTATIC
     Route: 065
     Dates: start: 2010
  10. PRADAXA [Concomitant]
     Indication: THROMBOSIS PROPHYLAXIS
  11. LOPRESSOR [Concomitant]
     Indication: HYPERTENSION
  12. CLONIDINE [Concomitant]
     Indication: HYPERTENSION
  13. PANITUMUMAB [Concomitant]
  14. XGEVA [Concomitant]
  15. TRAMADOL [Concomitant]
  16. PANTOPRAZOLE [Concomitant]
  17. COMPAZINE [Concomitant]
  18. CELEBREX [Concomitant]
  19. METOPROLOL [Concomitant]
  20. CLONAZEPAM [Concomitant]
  21. HYDROXYZINE [Concomitant]

REACTIONS (7)
  - Posterior reversible encephalopathy syndrome [Recovered/Resolved]
  - Mental status changes [Recovered/Resolved]
  - Convulsion [Recovered/Resolved]
  - Pulmonary embolism [Unknown]
  - Vaginal haemorrhage [Unknown]
  - Deep vein thrombosis [Unknown]
  - Blood pressure increased [Unknown]
